FAERS Safety Report 5633078-8 (Version None)
Quarter: 2008Q1

REPORT INFORMATION
  Report Type: 
  Country: None (occurrence: None)
  Receive Date: 20080221
  Receipt Date: 20080214
  Transmission Date: 20080703
  Serious: Yes (Death, Life-Threatening, Hospitalization)
  Sender: FDA-Public Use
  Company Number: DE-AVENTIS-200810438DE

PATIENT
  Age: 76 Year
  Sex: Female

DRUGS (17)
  1. LASIX [Suspect]
     Indication: OEDEMA
     Dosage: DOSE: 1-0-0 2-1-0
     Route: 048
     Dates: start: 20040907, end: 20041005
  2. PHENPROCOUMON [Suspect]
     Indication: MITRAL VALVE REPLACEMENT
     Dosage: DOSE: ACC. TO INR
     Route: 048
     Dates: start: 20040915, end: 20041005
  3. RANITIDINE HCL [Suspect]
     Route: 048
     Dates: start: 20040915, end: 20041005
  4. MARCUMAR [Concomitant]
     Indication: MITRAL VALVE REPLACEMENT
     Dosage: DOSE: NOT REPORTED
     Route: 048
     Dates: start: 20040906, end: 20040910
  5. ZOCOR [Concomitant]
     Route: 048
     Dates: start: 20040907, end: 20040915
  6. BELOC ZOK [Concomitant]
     Indication: HYPERTENSION
     Dosage: DOSE: 1-0-1
     Route: 048
     Dates: start: 20040903, end: 20041005
  7. CLEXANE [Concomitant]
     Indication: THROMBOSIS PROPHYLAXIS
     Route: 058
     Dates: start: 20040908, end: 20040911
  8. XANEF                              /00574902/ [Concomitant]
     Indication: HYPERTENSION
     Route: 048
     Dates: start: 20040908, end: 20040915
  9. FAVISTAN [Concomitant]
     Indication: HYPERTHYROIDISM
     Route: 048
     Dates: start: 20040908, end: 20040915
  10. IRENAT [Concomitant]
     Indication: HYPERTHYROIDISM
     Route: 048
     Dates: start: 20040908, end: 20040915
  11. KALINOR-BRAUSETABLETTEN [Concomitant]
     Dosage: DOSE: 1-0-0
     Route: 048
     Dates: start: 20040908, end: 20040921
  12. AMIODARONE HCL [Concomitant]
     Indication: ARRHYTHMIA
     Route: 048
     Dates: start: 20040909, end: 20040915
  13. NITRAZEPAM [Concomitant]
     Indication: SLEEP DISORDER
     Dosage: DOSE: 0-0-0-1
     Route: 048
     Dates: start: 20040913, end: 20040913
  14. VOLTAREN [Concomitant]
     Indication: PAIN
     Dosage: DOSE: 1 TABLET
     Route: 048
     Dates: start: 20040914, end: 20040914
  15. LOPEDIUM [Concomitant]
     Dosage: DOSE: TWO CAPSULES
     Route: 048
     Dates: start: 20040914, end: 20040914
  16. CORDAREX                           /00133102/ [Concomitant]
     Indication: ARRHYTHMIA
     Dosage: DOSE: 2-2-1
     Route: 048
     Dates: start: 20040915, end: 20040920
  17. REKAWAN [Concomitant]
     Dosage: DOSE: 1-0-1
     Route: 048
     Dates: start: 20040921, end: 20041004

REACTIONS (12)
  - BLISTER [None]
  - CONJUNCTIVITIS [None]
  - GENITAL EROSION [None]
  - LIP EROSION [None]
  - MOUTH ULCERATION [None]
  - MUCOSAL EROSION [None]
  - PAIN OF SKIN [None]
  - PRURITUS [None]
  - PYREXIA [None]
  - SKIN DISORDER [None]
  - STEVENS-JOHNSON SYNDROME [None]
  - TOXIC EPIDERMAL NECROLYSIS [None]
